FAERS Safety Report 5750151-4 (Version None)
Quarter: 2008Q2

REPORT INFORMATION
  Report Type: 
  Country: None (occurrence: None)
  Receive Date: 20080527
  Receipt Date: 20080519
  Transmission Date: 20081010
  Serious: Yes (Hospitalization, Other)
  Sender: FDA-Public Use
  Company Number: US-PFIZER INC-2008040233

PATIENT
  Age: 22 Year
  Sex: Female

DRUGS (5)
  1. NORVASC [Suspect]
     Dosage: DAILY DOSE:425MG-FREQ:ONCE
  2. DOPAMINE HCL [Suspect]
  3. EPINEPHRINE [Suspect]
  4. VASOPRESSIN INJECTION [Suspect]
  5. LEVOPHED [Suspect]

REACTIONS (8)
  - ATRIOVENTRICULAR BLOCK COMPLETE [None]
  - HYPOTENSION [None]
  - INTENTIONAL OVERDOSE [None]
  - OCCULT BLOOD POSITIVE [None]
  - PERIPHERAL ISCHAEMIA [None]
  - RENAL FAILURE ACUTE [None]
  - RESPIRATORY FAILURE [None]
  - SUICIDE ATTEMPT [None]
